FAERS Safety Report 10146386 (Version 2)
Quarter: 2014Q4

REPORT INFORMATION
  Report Type: Spontaneous
  Country: US (occurrence: US)
  Receive Date: 20140501
  Receipt Date: 20141010
  Transmission Date: 20150528
  Serious: Yes (Life-Threatening, Hospitalization)
  Sender: FDA-Public Use
  Company Number: US-BAYER-2014-063130

PATIENT
  Age: 26 Year
  Sex: Female
  Weight: 43 kg

DRUGS (1)
  1. MIRENA [Suspect]
     Active Substance: LEVONORGESTREL
     Indication: CONTRACEPTION
     Dosage: 20 MCG/24HR, CONT
     Route: 015
     Dates: start: 20100610, end: 20130303

REACTIONS (11)
  - Nausea [None]
  - Pain [None]
  - Depression [None]
  - General physical health deterioration [None]
  - Anhedonia [None]
  - Emotional distress [None]
  - Mental disorder [None]
  - Abdominal pain lower [None]
  - Uterine perforation [None]
  - Injury [None]
  - Anxiety [None]

NARRATIVE: CASE EVENT DATE: 20100610
